FAERS Safety Report 14877736 (Version 2)
Quarter: 2018Q3

REPORT INFORMATION
  Report Type: Report from Study
  Country: US (occurrence: US)
  Receive Date: 20180510
  Receipt Date: 20180723
  Transmission Date: 20181010
  Serious: No
  Sender: FDA-Public Use
  Company Number: US-AMGEN-USASP2018041755

PATIENT
  Age: 82 Year
  Sex: Female

DRUGS (2)
  1. REPATHA [Suspect]
     Active Substance: EVOLOCUMAB
     Indication: BLOOD CHOLESTEROL ABNORMAL
     Dosage: 140 MG, Q2WK
     Route: 065
     Dates: start: 20180313
  2. REPATHA [Suspect]
     Active Substance: EVOLOCUMAB
     Indication: BLOOD CHOLESTEROL INCREASED
     Dosage: 140 MG, Q2WK
     Route: 065

REACTIONS (9)
  - Arthritis [Unknown]
  - Accidental exposure to product [Unknown]
  - Underdose [Unknown]
  - Wrong technique in product usage process [Unknown]
  - Muscle spasms [Not Recovered/Not Resolved]
  - Sciatica [Unknown]
  - Rash [Unknown]
  - Injection site pain [Unknown]
  - Malaise [Unknown]

NARRATIVE: CASE EVENT DATE: 2018
